FAERS Safety Report 17435494 (Version 4)
Quarter: 2022Q1

REPORT INFORMATION
  Report Type: Report from Study
  Country: US (occurrence: US)
  Receive Date: 20200219
  Receipt Date: 20220314
  Transmission Date: 20220424
  Serious: No
  Sender: FDA-Public Use
  Company Number: NVSC2020US046268

PATIENT
  Sex: Male

DRUGS (1)
  1. ZORTRESS [Suspect]
     Active Substance: EVEROLIMUS
     Indication: Product used for unknown indication
     Dosage: UNK
     Route: 065

REACTIONS (2)
  - Nasopharyngitis [Unknown]
  - Product dose omission issue [Unknown]
